FAERS Safety Report 25746118 (Version 1)
Quarter: 2025Q3

REPORT INFORMATION
  Report Type: Spontaneous
  Country: JP (occurrence: JP)
  Receive Date: 20250901
  Receipt Date: 20250901
  Transmission Date: 20251020
  Serious: Yes (Other)
  Sender: AMGEN
  Company Number: JP-DSJP-DS-2025-161722-

PATIENT
  Age: 89 Year
  Sex: Male

DRUGS (1)
  1. DENOSUMAB [Suspect]
     Active Substance: DENOSUMAB
     Indication: Product used for unknown indication
     Route: 065
     Dates: start: 202001, end: 202404

REACTIONS (3)
  - Osteomyelitis [Unknown]
  - Osteonecrosis of jaw [Unknown]
  - Cellulitis [Unknown]
